FAERS Safety Report 14934481 (Version 1)
Quarter: 2018Q2

REPORT INFORMATION
  Report Type: Spontaneous
  Country: US (occurrence: US)
  Receive Date: 20180524
  Receipt Date: 20180524
  Transmission Date: 20180711
  Serious: Yes (Other)
  Sender: FDA-Public Use
  Company Number: US-PFIZER INC-2018211552

PATIENT
  Age: 60 Year
  Sex: Female

DRUGS (1)
  1. XELJANZ XR [Suspect]
     Active Substance: TOFACITINIB CITRATE
     Dosage: 11 MG, UNK

REACTIONS (6)
  - Muscle spasms [Not Recovered/Not Resolved]
  - Grip strength decreased [Unknown]
  - Condition aggravated [Unknown]
  - Nodule [Unknown]
  - Joint range of motion decreased [Unknown]
  - Retinal detachment [Unknown]

NARRATIVE: CASE EVENT DATE: 201805
